FAERS Safety Report 7933915-8 (Version None)
Quarter: 2011Q4

REPORT INFORMATION
  Report Type: 
  Country: None (occurrence: None)
  Receive Date: 20111122
  Receipt Date: 20111114
  Transmission Date: 20120403
  Serious: Yes (Other)
  Sender: FDA-Public Use
  Company Number: PHHY2011CA099425

PATIENT
  Sex: Male

DRUGS (1)
  1. CLOZARIL [Suspect]
     Indication: ABNORMAL BEHAVIOUR
     Dosage: 12.5 MG, DAILY
     Route: 048
     Dates: start: 20090101, end: 20111109

REACTIONS (2)
  - DEMENTIA [None]
  - ASTHENIA [None]
